FAERS Safety Report 5107888-X (Version None)
Quarter: 2006Q3

REPORT INFORMATION
  Report Type: 
  Country: None (occurrence: None)
  Receive Date: 20060919
  Receipt Date: 20060426
  Transmission Date: 20061208
  Serious: Yes (Hospitalization, Other)
  Sender: FDA-Public Use
  Company Number: US-BAYER-200612740BWH

PATIENT
  Age: 77 Year
  Sex: Male
  Weight: 65 kg

DRUGS (5)
  1. SORAFENIB [Suspect]
     Indication: METASTATIC RENAL CELL CARCINOMA
     Dosage: TOTAL DAILY DOSE: 800 MG  UNIT DOSE: 200 MG
     Route: 048
     Dates: start: 20050601, end: 20060331
  2. LEVOTHYROXINE SODIUM [Concomitant]
     Indication: HYPOTHYROIDISM
     Route: 048
     Dates: start: 19800101
  3. LISINOPRIL [Concomitant]
     Indication: HYPERTENSION
     Route: 048
     Dates: start: 20050101
  4. LIPITOR [Concomitant]
     Indication: HYPERCHOLESTEROLAEMIA
     Route: 048
     Dates: start: 20000101
  5. TRENTAL [Concomitant]
     Indication: PERIPHERAL VASCULAR DISORDER

REACTIONS (8)
  - ANEURYSM [None]
  - BLISTER [None]
  - DISEASE PROGRESSION [None]
  - GANGRENE [None]
  - PERIPHERAL VASCULAR DISORDER [None]
  - PULSE ABNORMAL [None]
  - RASH [None]
  - SKIN DISCOLOURATION [None]
